FAERS Safety Report 7381627-4 (Version None)
Quarter: 2011Q1

REPORT INFORMATION
  Report Type: 
  Country: None (occurrence: None)
  Receive Date: 20110329
  Receipt Date: 20100921
  Transmission Date: 20110831
  Serious: Yes (Hospitalization, Other)
  Sender: FDA-Public Use
  Company Number: US-BAYER-201014916NA

PATIENT
  Sex: Female
  Weight: 62.585 kg

DRUGS (8)
  1. YAZ [Suspect]
     Indication: PRODUCT USED FOR UNKNOWN INDICATION
     Dosage: AS USED DOSE: UNK
     Route: 048
     Dates: start: 20070329, end: 20080131
  2. YASMIN [Suspect]
  3. YASMIN [Suspect]
     Indication: PREMENSTRUAL SYNDROME
     Dosage: AS USED DOSE: UNK
     Route: 048
     Dates: start: 20070101, end: 20080131
  4. YAZ [Suspect]
     Indication: CONTRACEPTION
  5. YAZ [Suspect]
     Indication: MENOPAUSAL SYMPTOMS
  6. YAZ [Suspect]
     Indication: PREMENSTRUAL SYNDROME
  7. YASMIN [Suspect]
     Indication: CONTRACEPTION
  8. YASMIN [Suspect]
     Indication: MENOPAUSAL SYMPTOMS

REACTIONS (6)
  - INTRACRANIAL VENOUS SINUS THROMBOSIS [None]
  - JUGULAR VEIN THROMBOSIS [None]
  - CEREBELLAR HAEMORRHAGE [None]
  - TRANSVERSE SINUS THROMBOSIS [None]
  - CEREBROVASCULAR ACCIDENT [None]
  - ATAXIA [None]
